FAERS Safety Report 25794682 (Version 2)
Quarter: 2025Q4

REPORT INFORMATION
  Report Type: Report from Study
  Country: US (occurrence: US)
  Receive Date: 20250912
  Receipt Date: 20251022
  Transmission Date: 20260118
  Serious: Yes (Other)
  Sender: ALEXION PHARMACEUTICALS
  Company Number: US-ASTRAZENECA-202509USA003760US

PATIENT
  Age: 67 Year
  Sex: Female

DRUGS (1)
  1. STRENSIQ [Suspect]
     Active Substance: ASFOTASE ALFA
     Indication: Phosphorus metabolism disorder
     Dosage: 1 MILLIGRAM/KILOGRAM, SIX TIMES/WEEK
     Route: 065

REACTIONS (5)
  - Neuropathy peripheral [Not Recovered/Not Resolved]
  - Nail discolouration [Unknown]
  - Liver function test abnormal [Unknown]
  - Memory impairment [Unknown]
  - Confusional state [Unknown]
